FAERS Safety Report 25553646 (Version 2)
Quarter: 2025Q4

REPORT INFORMATION
  Report Type: Spontaneous
  Country: GB (occurrence: GB)
  Receive Date: 20250715
  Receipt Date: 20251104
  Transmission Date: 20260117
  Serious: Yes (Other)
  Sender: CSL BEHRING
  Company Number: GB-BIOVITRUM-2025-GB-009246

PATIENT
  Age: 19 Month
  Sex: Female

DRUGS (31)
  1. HUMAN IMMUNOGLOBULIN G [Suspect]
     Active Substance: HUMAN IMMUNOGLOBULIN G
     Indication: Haemophagocytic lymphohistiocytosis
     Dosage: HIGH DOSE
     Route: 042
  2. HUMAN IMMUNOGLOBULIN G [Suspect]
     Active Substance: HUMAN IMMUNOGLOBULIN G
     Indication: Cytopenia
     Dosage: UNK
     Route: 065
  3. KINERET [Suspect]
     Active Substance: ANAKINRA
     Indication: Haemophagocytic lymphohistiocytosis
     Dosage: 10 MG/KG, QD
     Route: 058
  4. DEXAMETHASONE [Suspect]
     Active Substance: DEXAMETHASONE
     Indication: Haemophagocytic lymphohistiocytosis
     Dosage: 10MG/M2 TO VARYING DOSES
     Route: 065
     Dates: start: 20250516
  5. DEXAMETHASONE [Suspect]
     Active Substance: DEXAMETHASONE
     Dosage: WEANED TO 5MG/M2 DUE TO RAISING ADV
     Route: 065
     Dates: start: 20250529, end: 20250619
  6. DEXAMETHASONE [Suspect]
     Active Substance: DEXAMETHASONE
     Dosage: 10 MG/M2 ((DOSE SPLIT INTO TWICE A DAY DOSING)
     Route: 048
  7. GAMIFANT [Suspect]
     Active Substance: EMAPALUMAB-LZSG
     Indication: Haemophagocytic lymphohistiocytosis
     Dosage: 1 MG/KG
  8. ETOPOSIDE [Suspect]
     Active Substance: ETOPOSIDE
     Indication: Haemophagocytic lymphohistiocytosis
     Dosage: 150 MG/M2 (INITIALLY TWICE A WEEK ? 4 DOSES, THEN EVERY 2 WEEKS)
     Route: 042
  9. ETOPOSIDE [Suspect]
     Active Substance: ETOPOSIDE
     Dosage: UNK
     Route: 065
     Dates: start: 20250719
  10. ETOPOSIDE [Suspect]
     Active Substance: ETOPOSIDE
     Dosage: UNK
     Route: 065
     Dates: start: 20250613
  11. ETOPOSIDE [Suspect]
     Active Substance: ETOPOSIDE
     Dosage: UNK
     Route: 065
     Dates: start: 20250617
  12. ETOPOSIDE [Suspect]
     Active Substance: ETOPOSIDE
     Dosage: UNK
     Route: 065
     Dates: start: 20250629
  13. ETOPOSIDE [Suspect]
     Active Substance: ETOPOSIDE
     Dosage: UNK
     Route: 065
     Dates: start: 20250609
  14. CYCLOSPORINE [Suspect]
     Active Substance: CYCLOSPORINE
     Indication: Haemophagocytic lymphohistiocytosis
     Dosage: HIGH DOSE
     Route: 065
  15. CYCLOSPORINE [Suspect]
     Active Substance: CYCLOSPORINE
     Dosage: 3 MG/M2
     Route: 048
  16. CYCLOSPORINE [Suspect]
     Active Substance: CYCLOSPORINE
     Dosage: 3 MG/M2 (HIGH DOSE, TWICE A DAY (BD) )
     Route: 048
  17. METHYLPREDNISOLONE [Suspect]
     Active Substance: METHYLPREDNISOLONE
     Indication: Haemophagocytic lymphohistiocytosis
     Dosage: PULSE DOSES
     Route: 048
     Dates: start: 20250516
  18. METHYLPREDNISOLONE [Suspect]
     Active Substance: METHYLPREDNISOLONE
     Dosage: PULSE DOSES
     Route: 065
     Dates: start: 20250517
  19. METHYLPREDNISOLONE [Suspect]
     Active Substance: METHYLPREDNISOLONE
     Dosage: PULSE DOSES
     Route: 065
     Dates: start: 20250526
  20. METHYLPREDNISOLONE [Suspect]
     Active Substance: METHYLPREDNISOLONE
     Dosage: PULSE DOSES
     Route: 065
     Dates: start: 20250527
  21. METHYLPREDNISOLONE [Suspect]
     Active Substance: METHYLPREDNISOLONE
     Dosage: PULSE DOSES
     Route: 065
     Dates: start: 20250528
  22. METHYLPREDNISOLONE [Suspect]
     Active Substance: METHYLPREDNISOLONE
     Dosage: PULSE DOSES
     Route: 065
     Dates: start: 20250515
  23. PREDNISOLONE [Suspect]
     Active Substance: PREDNISOLONE
     Indication: Haemophagocytic lymphohistiocytosis
     Dosage: PULSE DOSES
     Route: 065
     Dates: start: 20250520
  24. PREDNISOLONE [Suspect]
     Active Substance: PREDNISOLONE
     Dosage: PULSE DOSES
     Route: 065
  25. PREDNISOLONE [Suspect]
     Active Substance: PREDNISOLONE
     Dosage: PULSE DOSES
     Route: 065
  26. RITUXIMAB [Suspect]
     Active Substance: RITUXIMAB
     Indication: Haemophagocytic lymphohistiocytosis
     Dosage: 4 TIMES
     Route: 065
  27. RITUXIMAB [Suspect]
     Active Substance: RITUXIMAB
     Indication: Epstein-Barr virus infection
  28. MEROPENEM [Concomitant]
     Active Substance: MEROPENEM
     Indication: Pyrexia
  29. MEROPENEM [Concomitant]
     Active Substance: MEROPENEM
     Indication: Pyrexia
  30. AMBISOME [Concomitant]
     Active Substance: AMPHOTERICIN B
     Dosage: 1 MG/KG, QD
  31. AMBISOME [Concomitant]
     Active Substance: AMPHOTERICIN B
     Dosage: 3 MG/KG, QD

REACTIONS (6)
  - Haemophagocytic lymphohistiocytosis [Recovering/Resolving]
  - Adenovirus infection [Unknown]
  - Epstein-Barr virus infection [Unknown]
  - Off label use [Recovered/Resolved]
  - Condition aggravated [Recovering/Resolving]
  - Off label use [Unknown]
